FAERS Safety Report 13148545 (Version 2)
Quarter: 2017Q1

REPORT INFORMATION
  Report Type: Spontaneous
  Country: GB (occurrence: GB)
  Receive Date: 20170125
  Receipt Date: 20170127
  Transmission Date: 20170428
  Serious: Yes (Disabling)
  Sender: FDA-Public Use
  Company Number: GB-ASTRAZENECA-2017SE05403

PATIENT
  Age: 38 Year
  Sex: Male
  Weight: 82 kg

DRUGS (11)
  1. PROPRANOLOL [Concomitant]
     Active Substance: PROPRANOLOL HYDROCHLORIDE
     Dates: start: 20160121
  2. RHINOLAST [Concomitant]
     Active Substance: AZELASTINE HYDROCHLORIDE
     Dosage: 1 SPRAY TO EACH NOSTRIL. 2 DF TWO TIMES A DAY
     Route: 045
     Dates: start: 20160121
  3. CETIRIZINE [Concomitant]
     Active Substance: CETIRIZINE HYDROCHLORIDE
     Dosage: AS DIRECTED BY ALLERGY CLINIC, 1 DF TWO TIMES A DAY
     Dates: start: 20160121
  4. MONTELUKAST [Concomitant]
     Active Substance: MONTELUKAST SODIUM
     Dates: start: 20160121
  5. CANDESARTAN [Suspect]
     Active Substance: CANDESARTAN
     Indication: PRODUCT USED FOR UNKNOWN INDICATION
     Dosage: UNKNOWN
     Route: 048
     Dates: start: 20161213
  6. COLECALCIFEROL [Concomitant]
     Active Substance: CHOLECALCIFEROL
     Dates: start: 20160121
  7. DICLOFENACDIETHYLAMMONIUM [Concomitant]
     Indication: PAIN IN EXTREMITY
     Dates: start: 20161213
  8. FLUTICASONE PROPIONATE. [Concomitant]
     Active Substance: FLUTICASONE PROPIONATE
     Indication: CONDITION AGGRAVATED
     Dates: start: 20160415
  9. LODOXAMIDE [Concomitant]
     Active Substance: LODOXAMIDE
     Dosage: FROM MARCH EACH YEAR - AS DIRECTED. 1 DF TWO TIMES A DAY
     Dates: start: 20160728
  10. OLOPATADINE [Concomitant]
     Active Substance: OLOPATADINE
     Dosage: TWICE DAILY BOTH EYES.
     Route: 047
     Dates: start: 20150703
  11. RAMIPRIL. [Concomitant]
     Active Substance: RAMIPRIL
     Dates: start: 20160926, end: 20161213

REACTIONS (2)
  - Discomfort [Recovered/Resolved]
  - Neck pain [Recovered/Resolved]

NARRATIVE: CASE EVENT DATE: 20161223
